FAERS Safety Report 8107079-4 (Version None)
Quarter: 2012Q1

REPORT INFORMATION
  Report Type: 
  Country: None (occurrence: None)
  Receive Date: 20120202
  Receipt Date: 20120119
  Transmission Date: 20120608
  Serious: Yes (Hospitalization)
  Sender: FDA-Public Use
  Company Number: US-MYLANLABS-2012S1001563

PATIENT
  Age: 69 Year
  Sex: Male
  Weight: 133 kg

DRUGS (9)
  1. VANCOMYCIN [Suspect]
     Route: 065
  2. VANCOMYCIN [Suspect]
     Route: 065
  3. CEFEPIME [Suspect]
     Indication: EVIDENCE BASED TREATMENT
     Route: 065
  4. LEVOFLOXACIN [Concomitant]
     Indication: INFECTION
     Route: 048
  5. VANCOMYCIN [Suspect]
     Indication: EVIDENCE BASED TREATMENT
  6. GENTAMICIN [Suspect]
     Indication: INFECTION
  7. DAPTOMYCIN [Interacting]
     Indication: INFECTION
     Dosage: 8 MG/KG WITH WEIGHT OF 133 KG
     Route: 042
  8. SIMVASTATIN [Interacting]
     Route: 065
  9. VANCOMYCIN [Suspect]
     Indication: INFECTION

REACTIONS (3)
  - RHABDOMYOLYSIS [None]
  - DRUG HYPERSENSITIVITY [None]
  - DRUG INTERACTION [None]
